FAERS Safety Report 21694039 (Version 2)
Quarter: 2023Q1

REPORT INFORMATION
  Report Type: Spontaneous
  Country: US (occurrence: US)
  Receive Date: 20221207
  Receipt Date: 20230126
  Transmission Date: 20230418
  Serious: No
  Sender: FDA-Public Use
  Company Number: US-PFIZER INC-202201348548

PATIENT
  Age: 82 Year
  Sex: Female
  Weight: 64.86 kg

DRUGS (2)
  1. PAXLOVID [Suspect]
     Active Substance: NIRMATRELVIR\RITONAVIR
     Indication: COVID-19 treatment
     Dosage: 3 DF(TAKE TWO 150 MILLIGRAM TABLET TO THE TIME AND ONE OF THE 100 MILLIGRAM TABLETS)
  2. ATORVASTATIN [Concomitant]
     Active Substance: ATORVASTATIN
     Dosage: VERY LOW DOSE

REACTIONS (1)
  - Taste disorder [Recovering/Resolving]
